FAERS Safety Report 16637027 (Version 1)
Quarter: 2019Q3

REPORT INFORMATION
  Report Type: Spontaneous
  Country: US (occurrence: US)
  Receive Date: 20190726
  Receipt Date: 20190726
  Transmission Date: 20191004
  Serious: Yes (Hospitalization)
  Sender: FDA-Public Use
  Company Number: None

PATIENT
  Age: 52 Year
  Sex: Female
  Weight: 110.25 kg

DRUGS (7)
  1. BYDUREON [Suspect]
     Active Substance: EXENATIDE
     Indication: TYPE 2 DIABETES MELLITUS
     Dosage: ?          OTHER FREQUENCY:WEEKLY;?
     Route: 058
     Dates: start: 20190701, end: 20190718
  2. LEVOCETIRIZINE 2.5 MG BID [Concomitant]
     Dates: start: 20190226
  3. AMITRIPTYLINE 25 MG NIGHTLY [Concomitant]
     Dates: start: 20190226
  4. OMEPRAZOLE 20 MG DAILY [Concomitant]
     Dates: start: 20190226
  5. ATORVASTATIN 20 MG DAILY [Concomitant]
     Dates: start: 20190226
  6. HYDROCHLOROTHIAZIDE 25 MG DAILY [Concomitant]
     Dates: start: 20190106
  7. MONTELUKAST 10 MG DAILY [Concomitant]
     Dates: start: 20190226

REACTIONS (1)
  - Pancreatitis acute [None]

NARRATIVE: CASE EVENT DATE: 20190718
